FAERS Safety Report 11695965 (Version 1)
Quarter: 2015Q4

REPORT INFORMATION
  Report Type: Spontaneous
  Country: US (occurrence: None)
  Receive Date: 20151103
  Receipt Date: 20151103
  Transmission Date: 20160304
  Serious: Yes (Hospitalization)
  Sender: FDA-Public Use
  Company Number: None

PATIENT
  Age: 55 Year
  Sex: Male
  Weight: 106 kg

DRUGS (13)
  1. OXYCODONE [Concomitant]
     Active Substance: OXYCODONE
  2. OXYCODONE-CR (OXYCONTIN) [Concomitant]
  3. XANAX [Concomitant]
     Active Substance: ALPRAZOLAM
  4. PROCHLORPERAZINE MALEATE (COMPAZINE) [Concomitant]
  5. SENNOSIDES/DOCUSATE SODIUM (SENNA PLUS) [Concomitant]
  6. LINACLOTIDE (LINZESS ) [Concomitant]
  7. PEMBROLIZUMAB 100MG/4ML MERCK [Suspect]
     Active Substance: PEMBROLIZUMAB
     Indication: MESOTHELIOMA
     Dosage: 200MG  EVERY 3 WEEKS  INTRAVENOUS
     Route: 042
     Dates: start: 20150930
  8. ESCITALOPRAM OXALATE (LEXAPRO) [Concomitant]
  9. OXYCODONE-ACETAMINOPHEN (ROXICET) [Concomitant]
  10. TRAZODONE HCL (TRAZODONE) [Concomitant]
  11. LOSARTAN (COZAAR) [Concomitant]
  12. OMEPRAZOLE (PRILOSEC) [Concomitant]
  13. LIDOCAINE (LIDODERM) [Concomitant]

REACTIONS (1)
  - Ileus [None]

NARRATIVE: CASE EVENT DATE: 20151019
